FAERS Safety Report 6294914-8 (Version None)
Quarter: 2009Q3

REPORT INFORMATION
  Report Type: 
  Country: None (occurrence: None)
  Receive Date: 20090803
  Receipt Date: 20090724
  Transmission Date: 20100115
  Serious: Yes (Disabling)
  Sender: FDA-Public Use
  Company Number: US-ASTRAZENECA-2009SE06040

PATIENT
  Age: 20206 Day
  Sex: Male
  Weight: 82 kg

DRUGS (1)
  1. CRESTOR [Suspect]
     Route: 048
     Dates: start: 20090623, end: 20090707

REACTIONS (1)
  - PAIN IN EXTREMITY [None]
